FAERS Safety Report 5585989-X (Version None)
Quarter: 2007Q4

REPORT INFORMATION
  Report Type: 
  Country: None (occurrence: None)
  Receive Date: 20071205
  Receipt Date: 20070206
  Transmission Date: 20080405
  Serious: Yes (Death)
  Sender: FDA-Public Use
  Company Number: HQWYE142408FEB07

PATIENT
  Age: 69 Year
  Sex: Male

DRUGS (8)
  1. EFFEXOR XR [Suspect]
     Indication: DEPRESSION
     Dosage: 75 MG 1X PER 1 DAY
     Dates: start: 20060821, end: 20060101
  2. ACETAMINOPHEN [Concomitant]
  3. ALLOPURINOL [Concomitant]
  4. GLUCOSAMINE W/CHONDROITIN SULFATES (ASCORBIC ACID/CHONDROITIN SULFATE/ [Concomitant]
  5. UNIRETIC (HYDROCHLOROTHIAZIDE/MOEXIPRIL HYDROCHLORIDE) [Concomitant]
  6. LORTAB [Concomitant]
  7. OXYCONTIN [Concomitant]
  8. ETODOLAC (ETOCOLAC) [Concomitant]

REACTIONS (1)
  - COMPLETED SUICIDE [None]
